FAERS Safety Report 10687410 (Version 1)
Quarter: 2015Q1

REPORT INFORMATION
  Report Type: Spontaneous
  Country: GB (occurrence: GB)
  Receive Date: 20150102
  Receipt Date: 20150102
  Transmission Date: 20150720
  Serious: Yes (Death, Hospitalization)
  Sender: FDA-Public Use
  Company Number: GB-CELGENE-GBR-2014124005

PATIENT

DRUGS (1)
  1. VIDAZA [Suspect]
     Active Substance: AZACITIDINE
     Indication: MYELODYSPLASTIC SYNDROME
     Route: 065

REACTIONS (7)
  - Disease progression [Unknown]
  - Skin toxicity [Unknown]
  - Sepsis [Fatal]
  - Gastrointestinal toxicity [Unknown]
  - Infection [Unknown]
  - Adverse event [Unknown]
  - Drug ineffective [Unknown]
